FAERS Safety Report 13557456 (Version 1)
Quarter: 2017Q2

REPORT INFORMATION
  Report Type: Spontaneous
  Country: BR (occurrence: BR)
  Receive Date: 20170518
  Receipt Date: 20170518
  Transmission Date: 20170830
  Serious: Yes (Other)
  Sender: FDA-Public Use
  Company Number: BR-PFIZER INC-2017208066

PATIENT
  Age: 47 Year
  Sex: Female

DRUGS (2)
  1. XALATAN [Suspect]
     Active Substance: LATANOPROST
     Indication: GLAUCOMA
     Dosage: 1 DROP IN BOTH SIGHTS IN THE MORNING AND 1 DROP IN BOTH SIGHTS AT NIGHT
     Route: 047
     Dates: start: 201703
  2. COMBIGAN [Concomitant]
     Active Substance: BRIMONIDINE TARTRATE\TIMOLOL MALEATE
     Indication: GLAUCOMA
     Dosage: 2 DROPS IN BOTH EYES IN THE MORNING AND 2 DROPS IN BOTH EYES AT NIGHT
     Dates: start: 201704

REACTIONS (2)
  - Product use issue [Unknown]
  - Visual impairment [Unknown]
